FAERS Safety Report 14983750 (Version 1)
Quarter: 2018Q2

REPORT INFORMATION
  Report Type: Spontaneous
  Country: US (occurrence: US)
  Receive Date: 20180607
  Receipt Date: 20180607
  Transmission Date: 20180711
  Serious: No
  Sender: FDA-Public Use
  Company Number: US-TEVA-796553ACC

PATIENT
  Age: 81 Year
  Sex: Female
  Weight: 48 kg

DRUGS (1)
  1. CLOPIDOGREL [Suspect]
     Active Substance: CLOPIDOGREL BISULFATE
     Indication: TRANSIENT ISCHAEMIC ATTACK
     Dosage: THREE TO FOUR YEARS.

REACTIONS (4)
  - Weight decreased [Unknown]
  - Fatigue [Unknown]
  - Pruritus [Unknown]
  - Inappropriate schedule of drug administration [Unknown]
